FAERS Safety Report 16224584 (Version 1)
Quarter: 2019Q2

REPORT INFORMATION
  Report Type: Report from Study
  Country: IT (occurrence: IT)
  Receive Date: 20190422
  Receipt Date: 20190422
  Transmission Date: 20190711
  Serious: Yes (Hospitalization, Other)
  Sender: FDA-Public Use
  Company Number: IT-MYLANLABS-2019M1036756

PATIENT
  Age: 53 Year
  Sex: Female
  Weight: 72 kg

DRUGS (10)
  1. ISENTRESS [Concomitant]
     Active Substance: RALTEGRAVIR POTASSIUM
     Dosage: 2 DOSAGE FORM
     Route: 048
  2. DESCOVY [Concomitant]
     Active Substance: EMTRICITABINE\TENOFOVIR ALAFENAMIDE FUMARATE
     Dosage: 1 DOSAGE FORM
     Route: 048
  3. VALIUM [Suspect]
     Active Substance: DIAZEPAM
     Indication: PRODUCT USED FOR UNKNOWN INDICATION
     Dosage: 10 GTT DROPS, QD
     Route: 048
  4. AIRTAL [Suspect]
     Active Substance: ACECLOFENAC
     Indication: HEADACHE
     Dosage: UNK
     Route: 048
     Dates: start: 20180223
  5. PAROXETINE. [Suspect]
     Active Substance: PAROXETINE
     Indication: PRODUCT USED FOR UNKNOWN INDICATION
     Dosage: 1 DOSAGE FORM, QD
     Route: 048
  6. RYTMONORM [Suspect]
     Active Substance: PROPAFENONE
     Indication: PRODUCT USED FOR UNKNOWN INDICATION
     Dosage: 1 DOSAGE FORM, QD
     Route: 048
  7. TACHIDOL [Concomitant]
     Active Substance: ACETAMINOPHEN\CODEINE PHOSPHATE
     Indication: HEADACHE
     Dosage: 1 DOSAGE FORM
     Route: 048
     Dates: start: 20180223
  8. LEVOTHYROXINE SODIUM. [Suspect]
     Active Substance: LEVOTHYROXINE SODIUM
     Indication: PRODUCT USED FOR UNKNOWN INDICATION
     Dosage: 112.5 MICROGRAM, QD
     Route: 048
  9. IBUPROFEN. [Suspect]
     Active Substance: IBUPROFEN
     Indication: HEADACHE
     Dosage: 600 MILLIGRAM, PRN
     Route: 048
     Dates: start: 20180223
  10. NIMODIPINE. [Concomitant]
     Active Substance: NIMODIPINE
     Dosage: 30 MILLIGRAM
     Route: 048
     Dates: start: 20180223

REACTIONS (2)
  - Acute myocardial infarction [Recovered/Resolved with Sequelae]
  - Drug abuse [Unknown]

NARRATIVE: CASE EVENT DATE: 20180423
